FAERS Safety Report 21909198 (Version 2)
Quarter: 2023Q1

REPORT INFORMATION
  Report Type: Spontaneous
  Country: CO (occurrence: CO)
  Receive Date: 20230125
  Receipt Date: 20230227
  Transmission Date: 20230417
  Serious: Yes (Other)
  Sender: FDA-Public Use
  Company Number: CO-PFIZER INC-PV202300012356

PATIENT
  Age: 60 Year
  Sex: Female

DRUGS (1)
  1. ENBREL [Suspect]
     Active Substance: ETANERCEPT
     Indication: Rheumatoid arthritis
     Dosage: 50 MILLIGRAM, EVERY 8 DAYS
     Route: 058
     Dates: start: 2013, end: 202211

REACTIONS (7)
  - Finger deformity [Unknown]
  - Peripheral swelling [Unknown]
  - Pain in extremity [Unknown]
  - Lack of administration site rotation [Unknown]
  - Hyperhidrosis [Recovered/Resolved]
  - Asthenia [Unknown]
  - Off label use [Unknown]

NARRATIVE: CASE EVENT DATE: 20130101
